FAERS Safety Report 20619772 (Version 2)
Quarter: 2022Q2

REPORT INFORMATION
  Report Type: Other
  Country: CA (occurrence: CA)
  Receive Date: 20220322
  Receipt Date: 20220525
  Transmission Date: 20220721
  Serious: Yes (Other)
  Sender: FDA-Public Use
  Company Number: CA-CELLTRION INC.-2022CA003130

PATIENT

DRUGS (4)
  1. RITUXIMAB [Suspect]
     Active Substance: RITUXIMAB
     Indication: Product used for unknown indication
     Route: 065
  2. ALEMTUZUMAB [Concomitant]
     Active Substance: ALEMTUZUMAB
  3. BENADRYL [Concomitant]
     Active Substance: DIPHENHYDRAMINE HYDROCHLORIDE
  4. DEXAMETHASONE [Concomitant]
     Active Substance: DEXAMETHASONE
     Dosage: 40 MG
     Route: 048

REACTIONS (8)
  - Bladder disorder [Unknown]
  - Decreased vibratory sense [Unknown]
  - Dysmetria [Unknown]
  - Muscle spasticity [Unknown]
  - Vertebral lesion [Unknown]
  - Neutropenia [Unknown]
  - Infusion related reaction [Unknown]
  - Urinary tract infection [Unknown]
